FAERS Safety Report 18476864 (Version 2)
Quarter: 2020Q4

REPORT INFORMATION
  Report Type: Spontaneous
  Country: US (occurrence: US)
  Receive Date: 20201107
  Receipt Date: 20201212
  Transmission Date: 20210114
  Serious: No
  Sender: FDA-Public Use
  Company Number: NVSC2020US298315

PATIENT
  Age: 67 Year
  Sex: Male

DRUGS (1)
  1. VOLTAREN [Suspect]
     Active Substance: DICLOFENAC SODIUM
     Indication: BACK PAIN
     Dosage: UNK UNK, BID
     Route: 065

REACTIONS (3)
  - Therapeutic product effect variable [Unknown]
  - Inappropriate schedule of product administration [Unknown]
  - Product administered at inappropriate site [Recovering/Resolving]
